FAERS Safety Report 7741431-1 (Version None)
Quarter: 2011Q3

REPORT INFORMATION
  Report Type: 
  Country: None (occurrence: None)
  Receive Date: 20110909
  Receipt Date: 20110905
  Transmission Date: 20111222
  Serious: Yes (Death, Life-Threatening, Hospitalization)
  Sender: FDA-Public Use
  Company Number: DE-ASTRAZENECA-2011SE11053

PATIENT
  Age: 7991 Day
  Sex: Female

DRUGS (4)
  1. SEROQUEL [Suspect]
     Route: 048
     Dates: start: 20101101, end: 20101114
  2. SEROQUEL [Suspect]
     Route: 048
     Dates: start: 20101029, end: 20101031
  3. SEROQUEL [Suspect]
     Indication: PSYCHOTIC DISORDER
     Route: 048
     Dates: start: 20101027, end: 20101028
  4. LORAZEPAM [Suspect]
     Route: 048
     Dates: start: 20101101, end: 20101108

REACTIONS (5)
  - PANCYTOPENIA [None]
  - FEBRILE INFECTION [None]
  - SEPSIS [None]
  - AGRANULOCYTOSIS [None]
  - CIRCULATORY COLLAPSE [None]
